FAERS Safety Report 8431536-4 (Version None)
Quarter: 2012Q2

REPORT INFORMATION
  Report Type: 
  Country: None (occurrence: None)
  Receive Date: 20120607
  Receipt Date: 20120607
  Transmission Date: 20120825
  Serious: Yes (Other)
  Sender: FDA-Public Use
  Company Number: None

PATIENT
  Age: 72 Year
  Sex: Female
  Weight: 68.0396 kg

DRUGS (1)
  1. NASONEX [Suspect]
     Indication: SINUSITIS
     Dosage: 2 SPRAYS EVERY DAY
     Dates: start: 20100101, end: 20110701

REACTIONS (1)
  - THYROID MASS [None]
